FAERS Safety Report 6431352-9 (Version None)
Quarter: 2009Q4

REPORT INFORMATION
  Report Type: 
  Country: None (occurrence: None)
  Receive Date: 20091106
  Receipt Date: 20091026
  Transmission Date: 20100525
  Serious: Yes (Hospitalization, Other)
  Sender: FDA-Public Use
  Company Number: US-ELI_LILLY_AND_COMPANY-US200910006540

PATIENT
  Sex: Female

DRUGS (10)
  1. EVISTA [Suspect]
     Indication: PROPHYLAXIS
     Dosage: 60 MG, DAILY (1/D)
     Route: 065
  2. LIPITOR [Concomitant]
     Dosage: 20 MG, DAILY (1/D)
  3. CLONAZEPAM [Concomitant]
     Indication: TREMOR
     Dosage: 0.5 MG, OTHER
  4. CENTRUM SILVER [Concomitant]
  5. CALCIUM [Concomitant]
     Dosage: 600 MG, 2/D
  6. PRILOSEC [Concomitant]
  7. VITAMIN B COMPLEX CAP [Concomitant]
  8. MAGNESIUM [Concomitant]
  9. VITAMIN D [Concomitant]
  10. ASPIRIN [Concomitant]
     Dosage: UNK, DAILY (1/D)

REACTIONS (1)
  - KNEE ARTHROPLASTY [None]
